FAERS Safety Report 5203603-X (Version None)
Quarter: 2007Q1

REPORT INFORMATION
  Report Type: 
  Country: None (occurrence: None)
  Receive Date: 20070110
  Receipt Date: 20061226
  Transmission Date: 20070707
  Serious: Yes (Other)
  Sender: FDA-Public Use
  Company Number: FR-BRISTOL-MYERS SQUIBB COMPANY-13628292

PATIENT
  Age: 78 Year
  Sex: Male

DRUGS (14)
  1. COUMADIN [Suspect]
     Dates: start: 20061011, end: 20061101
  2. ALLOPURINOL TAB [Suspect]
  3. KENZEN [Suspect]
     Dates: start: 20061101, end: 20061108
  4. PERINDOPRIL ERBUMINE [Suspect]
     Dates: start: 20061005, end: 20061101
  5. SIMVASTATIN [Suspect]
     Dates: start: 20061014, end: 20061108
  6. CORDARONE [Suspect]
     Dates: start: 20061008
  7. LASIX [Suspect]
  8. CALCIPARINE [Suspect]
  9. ASPIRIN [Suspect]
  10. CORTANCYL [Concomitant]
  11. ATACAND [Concomitant]
  12. CARDENSIEL [Concomitant]
  13. PLAVIX [Concomitant]
  14. ALPRAZOLAM [Concomitant]

REACTIONS (9)
  - DIARRHOEA [None]
  - EOSINOPHILIA [None]
  - HEPATIC ENZYME INCREASED [None]
  - INTERNATIONAL NORMALISED RATIO FLUCTUATION [None]
  - LEUKOCYTOSIS [None]
  - PROTHROMBIN TIME ABNORMAL [None]
  - PROTHROMBIN TIME SHORTENED [None]
  - PRURITUS [None]
  - RENAL FAILURE ACUTE [None]
